FAERS Safety Report 9892441 (Version 5)
Quarter: 2014Q1

REPORT INFORMATION
  Report Type: Spontaneous
  Country: IL (occurrence: IL)
  Receive Date: 20140212
  Receipt Date: 20140326
  Transmission Date: 20141002
  Serious: Yes (Hospitalization, Other)
  Sender: FDA-Public Use
  Company Number: IL-009507513-1312ISR004072

PATIENT
  Age: 48 Year
  Sex: Female

DRUGS (5)
  1. VICTRELIS [Suspect]
     Indication: HEPATITIS C
     Dosage: 800 MG, TID
     Route: 048
     Dates: start: 20131128
  2. COPEGUS [Suspect]
     Dosage: TWICE A DAY AT 08:00 AM AND 20:00 PM
     Route: 048
     Dates: start: 20131031, end: 2013
  3. COPEGUS [Suspect]
     Dosage: 1 DF, QD
     Route: 048
     Dates: start: 2013
  4. PEGASYS [Suspect]
     Dosage: EVERY THURSDAY
     Dates: start: 20131031
  5. IMURAN (AZATHIOPRINE) [Concomitant]

REACTIONS (22)
  - Aphonia [Unknown]
  - Haemoglobin decreased [Unknown]
  - Haemoglobin decreased [Recovered/Resolved]
  - Transfusion [Recovered/Resolved]
  - Feeling abnormal [Unknown]
  - Burning sensation [Unknown]
  - Feeling abnormal [Not Recovered/Not Resolved]
  - Feeling abnormal [Unknown]
  - Haemoglobin abnormal [Unknown]
  - White blood cell disorder [Unknown]
  - Memory impairment [Unknown]
  - Malaise [Unknown]
  - Haemoglobin decreased [Unknown]
  - Haemoglobin decreased [Not Recovered/Not Resolved]
  - Neutrophil count decreased [Unknown]
  - Asthenia [Unknown]
  - Fatigue [Unknown]
  - Nausea [Unknown]
  - Asthenia [Unknown]
  - Dizziness [Unknown]
  - Haemoglobin decreased [Unknown]
  - Haemoglobin decreased [Unknown]
